FAERS Safety Report 8346271-0 (Version None)
Quarter: 2012Q2

REPORT INFORMATION
  Report Type: 
  Country: None (occurrence: None)
  Receive Date: 20120509
  Receipt Date: 20120426
  Transmission Date: 20120825
  Serious: Yes (Hospitalization)
  Sender: FDA-Public Use
  Company Number: JP-ASTELLAS-2012US004490

PATIENT
  Age: 64 Year
  Sex: Male

DRUGS (8)
  1. GRAN [Suspect]
     Indication: NEUTROPENIA
     Dosage: 150 UG, UID/QD
     Route: 058
     Dates: start: 20120109, end: 20120114
  2. GRAN [Suspect]
     Dosage: 300 UG, UNKNOWN/D
     Route: 058
     Dates: start: 20120116, end: 20120118
  3. NEUTROGIN [Concomitant]
     Indication: PRODUCT USED FOR UNKNOWN INDICATION
     Dosage: UNK
     Route: 065
     Dates: start: 20120104, end: 20120105
  4. DORIPENEM MONOHYDRATE [Concomitant]
     Indication: PRODUCT USED FOR UNKNOWN INDICATION
     Dosage: UNK
     Route: 065
     Dates: start: 20120111, end: 20120208
  5. AMBISOME [Suspect]
     Dosage: 175 MG, UID/QD
     Route: 042
     Dates: start: 20120106, end: 20120124
  6. RED BLOOD CELLS, CONCENTRATED [Concomitant]
     Indication: PRODUCT USED FOR UNKNOWN INDICATION
     Dosage: UNK
     Route: 065
     Dates: start: 20120110, end: 20120126
  7. AMBISOME [Suspect]
     Indication: BRONCHOPULMONARY ASPERGILLOSIS
     Dosage: 150 MG, UID/QD
     Route: 042
     Dates: start: 20120104, end: 20120105
  8. MAXIPIME [Concomitant]
     Indication: PRODUCT USED FOR UNKNOWN INDICATION
     Dosage: UNK
     Route: 065
     Dates: start: 20120104, end: 20120110

REACTIONS (1)
  - INTERSTITIAL LUNG DISEASE [None]
